FAERS Safety Report 15339190 (Version 1)
Quarter: 2018Q3

REPORT INFORMATION
  Report Type: Spontaneous
  Country: CA (occurrence: CA)
  Receive Date: 20180831
  Receipt Date: 20180831
  Transmission Date: 20181010
  Serious: Yes (Other)
  Sender: FDA-Public Use
  Company Number: CA-TEVA-2018-CA-950142

PATIENT
  Sex: Male

DRUGS (1)
  1. VALSARTAN. [Suspect]
     Active Substance: VALSARTAN
     Indication: MYOCARDIAL INFARCTION
     Route: 065

REACTIONS (5)
  - Hepatic neoplasm [Recovered/Resolved]
  - Economic problem [Unknown]
  - Hepatic cancer [Recovered/Resolved]
  - Product use issue [Unknown]
  - Anxiety [Unknown]
